FAERS Safety Report 23275067 (Version 5)
Quarter: 2024Q1

REPORT INFORMATION
  Report Type: Spontaneous
  Country: CZ (occurrence: CZ)
  Receive Date: 20231208
  Receipt Date: 20240219
  Transmission Date: 20240410
  Serious: Yes (Death, Life-Threatening)
  Sender: FDA-Public Use
  Company Number: CZ-BoehringerIngelheim-2023-BI-276989

PATIENT
  Age: 59 Year
  Sex: Female
  Weight: 70 kg

DRUGS (11)
  1. EMPAGLIFLOZIN [Suspect]
     Active Substance: EMPAGLIFLOZIN
     Indication: Type 2 diabetes mellitus
     Dates: end: 20230929
  2. METFORMIN [Suspect]
     Active Substance: METFORMIN HYDROCHLORIDE
     Indication: Type 2 diabetes mellitus
     Dosage: SIOFOR 1000
  3. METOPROLOL SUCCINATE [Concomitant]
     Active Substance: METOPROLOL SUCCINATE
     Indication: Product used for unknown indication
  4. AMARYL [Concomitant]
     Active Substance: GLIMEPIRIDE
     Indication: Product used for unknown indication
     Dosage: AMARYL 3
  5. TORVAZIN [Concomitant]
     Indication: Product used for unknown indication
  6. FENOFIBRATE [Concomitant]
     Active Substance: FENOFIBRATE
     Indication: Product used for unknown indication
     Dosage: LIPANTHYL 145 0-0-1
  7. VALSARTAN [Concomitant]
     Active Substance: VALSARTAN
     Indication: Product used for unknown indication
  8. FUROSEMIDE [Concomitant]
     Active Substance: FUROSEMIDE
     Indication: Product used for unknown indication
     Dosage: FURON 40 1/2-0-0 EVERY OTHER DAY
  9. SPIRONOLACTONE [Concomitant]
     Active Substance: SPIRONOLACTONE
     Dosage: VEROSPIRON 25 1-0-0 EVERY OTHER DAY
  10. ZOLOFT [Concomitant]
     Active Substance: SERTRALINE HYDROCHLORIDE
  11. Novarep [Concomitant]

REACTIONS (7)
  - Cardiac arrest [Fatal]
  - Acute myocardial infarction [Unknown]
  - Infection [Unknown]
  - Ketoacidosis [Recovered/Resolved with Sequelae]
  - Acute kidney injury [Unknown]
  - Renal tubular acidosis [Unknown]
  - Acidosis hyperchloraemic [Recovered/Resolved with Sequelae]

NARRATIVE: CASE EVENT DATE: 20230901
